FAERS Safety Report 24156010 (Version 2)
Quarter: 2024Q3

REPORT INFORMATION
  Report Type: Spontaneous
  Country: GB (occurrence: GB)
  Receive Date: 20240731
  Receipt Date: 20240909
  Transmission Date: 20241017
  Serious: Yes (Hospitalization, Other)
  Sender: MYLAN
  Company Number: GB-MYLANLABS-2024M1070307

PATIENT
  Age: 34 Year
  Sex: Male

DRUGS (9)
  1. CLOZARIL [Suspect]
     Active Substance: CLOZAPINE
     Indication: Schizophrenia
     Dosage: 300 MILLIGRAM, QD (ONCE A DAY)
     Route: 048
     Dates: start: 20240220, end: 20240720
  2. CLOZARIL [Suspect]
     Active Substance: CLOZAPINE
     Dosage: UNK
     Route: 065
  3. AMLODIPINE [Concomitant]
     Active Substance: AMLODIPINE BESYLATE
     Indication: Blood pressure abnormal
     Dosage: 10 MILLIGRAM, QD (ONCE A DAY)
     Route: 048
     Dates: start: 20231214, end: 20240815
  4. CHOLECALCIFEROL [Concomitant]
     Active Substance: CHOLECALCIFEROL
     Indication: Supplementation therapy
     Dosage: 800 UNITS, QD (ONCE A DAY)
     Route: 048
     Dates: start: 20231219
  5. SCOPOLAMINE [Concomitant]
     Active Substance: SCOPOLAMINE
     Indication: Adverse drug reaction
     Dosage: 1 MILLIGRAM, Q3D (EVERY 3 DAYS OR 72 HOURS)
     Route: 061
     Dates: start: 20240621, end: 20240723
  6. LANSOPRAZOLE [Concomitant]
     Active Substance: LANSOPRAZOLE
     Indication: Product used for unknown indication
     Dosage: 30 MILLIGRAM, QD (ONCE A DAY)
     Route: 048
     Dates: start: 20231214
  7. RAMIPRIL [Concomitant]
     Active Substance: RAMIPRIL
     Indication: Blood pressure abnormal
     Dosage: 5 MILLIGRAM, BID (TWICE A DAY)
     Route: 048
     Dates: start: 20231220, end: 20240815
  8. VALPROIC ACID [Concomitant]
     Active Substance: VALPROIC ACID
     Indication: Affective disorder
     Dosage: 1 GRAM, BID (TWICE A DAY)
     Route: 048
     Dates: start: 20231220
  9. VALPROIC ACID [Concomitant]
     Active Substance: VALPROIC ACID
     Dosage: 750 MILLIGRAM, BID (TWICE A DAY)
     Route: 048

REACTIONS (9)
  - Sepsis [Unknown]
  - Pyrexia [Unknown]
  - Haemodynamic instability [Recovering/Resolving]
  - Neutropenia [Unknown]
  - C-reactive protein increased [Recovering/Resolving]
  - General physical health deterioration [Unknown]
  - White blood cell count decreased [Unknown]
  - Tachycardia [Unknown]
  - Blood pressure abnormal [Unknown]

NARRATIVE: CASE EVENT DATE: 20240721
